FAERS Safety Report 8729711 (Version 2)
Quarter: 2015Q2

REPORT INFORMATION
  Report Type: Report from Study
  Country: US (occurrence: US)
  Receive Date: 20120817
  Receipt Date: 20150626
  Transmission Date: 20150821
  Serious: Yes (Hospitalization)
  Sender: FDA-Public Use
  Company Number: US-ROCHE-1101266

PATIENT
  Sex: Male

DRUGS (9)
  1. ASPIRIN. [Concomitant]
     Active Substance: ASPIRIN
     Route: 048
  2. LIDOCAINE BOLUS [Concomitant]
     Route: 040
  3. HEPARIN [Concomitant]
     Active Substance: HEPARIN SODIUM
     Route: 042
  4. RINGER^S INJECTION, LACTATED [Concomitant]
     Active Substance: RINGER^S INJECTION, LACTATED
     Route: 042
  5. MORPHINE SULFATE OR COMPARATOR [Concomitant]
     Route: 042
  6. ACTIVASE [Suspect]
     Active Substance: ALTEPLASE
     Indication: MYOCARDIAL INFARCTION
     Dosage: OVER 2 MG PER HOUR
     Route: 040
  7. MORPHINE SULFATE OR COMPARATOR [Concomitant]
     Route: 042
  8. ATROPINE [Concomitant]
     Active Substance: ATROPINE
     Route: 042
  9. EPINEPHRINE. [Concomitant]
     Active Substance: EPINEPHRINE
     Route: 042

REACTIONS (4)
  - Extrasystoles [Unknown]
  - Chest pain [Unknown]
  - Ventricular tachycardia [Unknown]
  - Nodal rhythm [Unknown]
